FAERS Safety Report 4523719-0 (Version None)
Quarter: 2004Q4

REPORT INFORMATION
  Report Type: 
  Country: None (occurrence: None)
  Receive Date: 20041210
  Receipt Date: 20040406
  Transmission Date: 20050328
  Serious: Yes (Other)
  Sender: FDA-Public Use
  Company Number: PHBS2004BR04700

PATIENT
  Age: 75 Year
  Sex: Male
  Weight: 72 kg

DRUGS (12)
  1. FLOTAC [Concomitant]
     Dates: start: 20040201
  2. ZOLADEX [Concomitant]
     Dates: start: 20000101, end: 20020201
  3. CYCLOPHOSPHAMIDE [Concomitant]
     Dates: start: 20010901, end: 20020501
  4. CYCLOPHOSPHAMIDE [Concomitant]
     Dates: start: 20020501, end: 20020601
  5. CYCLOPHOSPHAMIDE [Concomitant]
     Dates: start: 20030301, end: 20030601
  6. ONCOVIN [Concomitant]
     Dates: start: 20010901, end: 20020501
  7. ALKERAN [Concomitant]
     Dates: start: 20021001, end: 20021201
  8. PREDNISONE [Concomitant]
     Dates: start: 20021001, end: 20021201
  9. PREDNISONE [Concomitant]
     Dates: start: 20030301, end: 20030601
  10. CARMUSTINE [Concomitant]
     Dates: start: 20030301, end: 20030601
  11. ZOMETA [Suspect]
     Indication: MULTIPLE MYELOMA
     Dosage: 4 MG, QMO
     Route: 042
     Dates: start: 20010901, end: 20030601
  12. ZOMETA [Suspect]
     Dosage: 4 MG, QMO
     Route: 042
     Dates: start: 20030701, end: 20040401

REACTIONS (10)
  - ASEPTIC NECROSIS BONE [None]
  - GINGIVAL PAIN [None]
  - ORAL SOFT TISSUE DISORDER [None]
  - OSTEOMYELITIS [None]
  - OSTEONECROSIS [None]
  - PAIN IN JAW [None]
  - POST PROCEDURAL PAIN [None]
  - PYREXIA [None]
  - TOOTH INFECTION [None]
  - WOUND DEBRIDEMENT [None]
